FAERS Safety Report 12773334 (Version 1)
Quarter: 2016Q3

REPORT INFORMATION
  Report Type: Spontaneous
  Country: US (occurrence: US)
  Receive Date: 20160922
  Receipt Date: 20160922
  Transmission Date: 20161109
  Serious: No
  Sender: FDA-Public Use
  Company Number: US-BANPHARM-20164727

PATIENT
  Age: 64 Year
  Sex: Female
  Weight: 61.69 kg

DRUGS (3)
  1. ZYRTEC [Suspect]
     Active Substance: CETIRIZINE HYDROCHLORIDE
     Indication: MULTIPLE ALLERGIES
     Dosage: 1 DF, QD,
     Route: 048
  2. ZOLTIM [Concomitant]
     Indication: INSOMNIA
     Dosage: 1 DF,
  3. LORAZEPAM. [Concomitant]
     Active Substance: LORAZEPAM
     Dosage: 1 DF,

REACTIONS (1)
  - Drug ineffective [Unknown]
